FAERS Safety Report 24933410 (Version 1)
Quarter: 2025Q1

REPORT INFORMATION
  Report Type: Spontaneous
  Country: US (occurrence: US)
  Receive Date: 20250206
  Receipt Date: 20250206
  Transmission Date: 20250408
  Serious: No
  Sender: STALLERGENES
  Company Number: US-STALCOR-2024-AER-02904

PATIENT
  Age: 12 Year
  Sex: Female

DRUGS (7)
  1. PALFORZIA [Suspect]
     Active Substance: PEANUT
     Indication: Food allergy
     Dosage: 2X1MG AND10MG: LVL3: MIX CONTENTS OF CAPSULES WELL WITH SEMISOLID FOOD AS DIRECTED AND CONSUME ONCE
     Route: 048
     Dates: start: 202411
  2. PALFORZIA [Suspect]
     Active Substance: PEANUT
     Dosage: 2X1MG AND10MG: LVL3: MIX CONTENTS OF CAPSULES WELL WITH SEMISOLID FOOD AS DIRECTED AND CONSUME ONCE
     Route: 048
     Dates: start: 202409
  3. LORATADINE [Concomitant]
     Active Substance: LORATADINE
  4. DESMOPRESSIN [Concomitant]
     Active Substance: DESMOPRESSIN
  5. FLONASE ALLERGY RELIEF [Concomitant]
     Active Substance: FLUTICASONE PROPIONATE
  6. HUMIRA [Concomitant]
     Active Substance: ADALIMUMAB
  7. TRIAMCINOLONE ACETONIDE [Concomitant]
     Active Substance: TRIAMCINOLONE ACETONIDE

REACTIONS (1)
  - Oral pruritus [Unknown]

NARRATIVE: CASE EVENT DATE: 20241203
